FAERS Safety Report 6187118-0 (Version None)
Quarter: 2009Q2

REPORT INFORMATION
  Report Type: 
  Country: None (occurrence: None)
  Receive Date: 20090512
  Receipt Date: 20090512
  Transmission Date: 20091009
  Serious: Yes (Other)
  Sender: FDA-Public Use
  Company Number: US-PFIZER INC-2009163226

PATIENT
  Sex: Female
  Weight: 108.86 kg

DRUGS (1)
  1. DOXYCYCLINE HYCLATE [Suspect]
     Indication: LYME DISEASE
     Route: 048
     Dates: start: 20081224

REACTIONS (2)
  - NAUSEA [None]
  - VISUAL ACUITY REDUCED [None]
